FAERS Safety Report 5019463-6 (Version None)
Quarter: 2006Q2

REPORT INFORMATION
  Report Type: 
  Country: None (occurrence: None)
  Receive Date: 20060531
  Receipt Date: 20060518
  Transmission Date: 20061013
  Serious: Yes (Death, Other)
  Sender: FDA-Public Use
  Company Number: 2006049895

PATIENT
  Age: 61 Year
  Sex: Male
  Weight: 62 kg

DRUGS (8)
  1. SUTENT [Suspect]
     Indication: HEPATIC NEOPLASM MALIGNANT
     Dosage: 50 MG (50 MG, 1 IN 1 D), ORAL
     Route: 048
     Dates: start: 20060308, end: 20060402
  2. SPIRONOLACTONE [Concomitant]
  3. FUROSEMIDE [Concomitant]
  4. PROPRANOLOL [Concomitant]
  5. VOGALENE (METOPIMAZINE) [Concomitant]
  6. OXAZEPAM [Concomitant]
  7. PAROXETINE [Concomitant]
  8. ANTIBIOTICS (ANTIBIOTICS) [Concomitant]

REACTIONS (9)
  - DISEASE PROGRESSION [None]
  - ENCEPHALOPATHY [None]
  - HEPATIC ENCEPHALOPATHY [None]
  - HEPATIC NEOPLASM MALIGNANT [None]
  - HYPOTHERMIA [None]
  - LEUKOPENIA [None]
  - NEUTROPENIA [None]
  - SEPSIS [None]
  - THROMBOCYTOPENIA [None]
